FAERS Safety Report 6242055-8 (Version None)
Quarter: 2009Q2

REPORT INFORMATION
  Report Type: 
  Country: None (occurrence: None)
  Receive Date: 20090622
  Receipt Date: 20090605
  Transmission Date: 20091009
  Serious: Yes (Hospitalization)
  Sender: FDA-Public Use
  Company Number: DSA_33876_2009

PATIENT
  Sex: Female

DRUGS (4)
  1. MONOTILDIEM /00489701/ (MONOTILDIEM - DILTIAZEM HYDROCHLORIDE) 200 MG [Suspect]
     Indication: HYPERTENSION
     Dosage: (DAILY DOSE ORAL)
     Route: 048
     Dates: start: 20090421, end: 20090429
  2. ALDACTAZIDE [Suspect]
     Indication: HYPERTENSION
     Dosage: (DF ORAL)
     Route: 048
     Dates: start: 20090421, end: 20090429
  3. GALENIC/DEXTROPROPOXYPHENE/PARACETAMOL/ (DEXTROPROPOXYPHENE/PARACETAMO [Suspect]
     Indication: DRUG USE FOR UNKNOWN INDICATION
     Dosage: (DAILY DOSE ORAL)
     Route: 048
     Dates: start: 20090212, end: 20090501
  4. TRAMADOL HCL [Concomitant]

REACTIONS (6)
  - EOSINOPHILIA [None]
  - LEUKOCYTOSIS [None]
  - NAUSEA [None]
  - ORAL DISORDER [None]
  - RASH MACULO-PAPULAR [None]
  - RASH PRURITIC [None]
